FAERS Safety Report 23959255 (Version 1)
Quarter: 2024Q2

REPORT INFORMATION
  Report Type: Spontaneous
  Country: PL (occurrence: PL)
  Receive Date: 20240611
  Receipt Date: 20240611
  Transmission Date: 20240715
  Serious: Yes (Other)
  Sender: FDA-Public Use
  Company Number: None

PATIENT
  Age: 83 Year
  Sex: Male
  Weight: 84 kg

DRUGS (2)
  1. OPDIVO [Suspect]
     Active Substance: NIVOLUMAB
     Indication: Lung neoplasm malignant
     Dosage: VIAL CONTAINS 100 MG; DOSE 240 DOSE UNIT UNKNOWN; THERAPY ONGOING
     Route: 042
     Dates: start: 20190926
  2. OPDIVO [Suspect]
     Active Substance: NIVOLUMAB
     Dosage: VIAL CONTAINS 40 MG;  DOSE 240 DOSE UNIT UNKNOWN; THERAPY ONGOING
     Route: 042
     Dates: start: 20190926

REACTIONS (2)
  - Diarrhoea [Recovering/Resolving]
  - Chronic kidney disease [Recovering/Resolving]

NARRATIVE: CASE EVENT DATE: 20200204
